FAERS Safety Report 4964362-9 (Version None)
Quarter: 2006Q1

REPORT INFORMATION
  Report Type: 
  Country: None (occurrence: None)
  Receive Date: 20060331
  Receipt Date: 20060315
  Transmission Date: 20060701
  Serious: Yes (Other)
  Sender: FDA-Public Use
  Company Number: US200603004493

PATIENT
  Age: 54 Year
  Sex: Male

DRUGS (1)
  1. CIALIS [Suspect]
     Indication: ERECTILE DYSFUNCTION
     Dosage: UNK, 2/W
     Route: 065

REACTIONS (5)
  - ANAPHYLACTOID REACTION [None]
  - DYSPHAGIA [None]
  - EYE PRURITUS [None]
  - LACRIMATION INCREASED [None]
  - SINUS HEADACHE [None]
